FAERS Safety Report 6155916-5 (Version None)
Quarter: 2009Q2

REPORT INFORMATION
  Report Type: 
  Country: None (occurrence: None)
  Receive Date: 20090410
  Receipt Date: 20090410
  Transmission Date: 20091009
  Serious: No
  Sender: FDA-Public Use
  Company Number: None

PATIENT
  Age: 28 Year
  Sex: Male
  Weight: 86.1834 kg

DRUGS (1)
  1. PAXIL [Suspect]
     Indication: SOCIAL PHOBIA
     Dosage: 20 MG DAILY PO
     Route: 048
     Dates: start: 19940101, end: 20040101

REACTIONS (6)
  - ANORGASMIA [None]
  - DRUG WITHDRAWAL SYNDROME [None]
  - LIBIDO DECREASED [None]
  - PALPITATIONS [None]
  - PARAESTHESIA [None]
  - SOCIAL PROBLEM [None]
